FAERS Safety Report 4666461-8 (Version None)
Quarter: 2005Q2

REPORT INFORMATION
  Report Type: 
  Country: None (occurrence: None)
  Receive Date: 20050518
  Receipt Date: 20050506
  Transmission Date: 20051028
  Serious: Yes (Hospitalization, Other)
  Sender: FDA-Public Use
  Company Number: 2005062771

PATIENT
  Age: 64 Year
  Sex: Female
  Weight: 72.5755 kg

DRUGS (3)
  1. CELEBREX [Suspect]
     Indication: ARTHRITIS
     Dosage: 200 MG (200 MG, 1 IN 1 D), ORAL
     Route: 048
     Dates: start: 20000101, end: 20010101
  2. BEXTRA [Suspect]
     Indication: ARTHRITIS
     Dosage: 20 MG (20 MG, 1 IN 1 D), ORAL
     Route: 048
     Dates: start: 20010101
  3. DYAZIDE [Concomitant]

REACTIONS (7)
  - BREAST CANCER STAGE IV [None]
  - DRUG INEFFECTIVE [None]
  - METASTASES TO BONE [None]
  - RASH MACULAR [None]
  - SKIN DISCOLOURATION [None]
  - SPINAL FRACTURE [None]
  - WHITE BLOOD CELL COUNT DECREASED [None]
